FAERS Safety Report 20986905 (Version 2)
Quarter: 2022Q3

REPORT INFORMATION
  Report Type: Spontaneous
  Country: BE (occurrence: BE)
  Receive Date: 20220621
  Receipt Date: 20220704
  Transmission Date: 20221026
  Serious: Yes (Hospitalization)
  Sender: FDA-Public Use
  Company Number: BE-ASTELLAS-2022US020359

PATIENT
  Age: 32 Year
  Sex: Male
  Weight: 82 kg

DRUGS (7)
  1. MEDROL [Suspect]
     Active Substance: METHYLPREDNISOLONE
     Indication: Immunosuppression
     Dosage: UNK
     Route: 065
     Dates: start: 20190912
  2. MYCOPHENOLATE MOFETIL [Suspect]
     Active Substance: MYCOPHENOLATE MOFETIL
     Indication: Immunosuppression
     Dosage: UNK MG
     Route: 048
     Dates: start: 20190901
  3. MYCOPHENOLATE MOFETIL [Suspect]
     Active Substance: MYCOPHENOLATE MOFETIL
     Dosage: 400 MG
     Route: 048
     Dates: start: 20190419
  4. TACROLIMUS [Suspect]
     Active Substance: TACROLIMUS
     Indication: Immunosuppression
     Dosage: UNK
     Route: 065
     Dates: start: 20190917
  5. ITACITINIB [Suspect]
     Active Substance: ITACITINIB
     Indication: Bronchiolitis obliterans syndrome
     Dosage: 400 MG, 1X/DAY
     Route: 048
     Dates: start: 20210419
  6. MONTELUKAST [Concomitant]
     Active Substance: MONTELUKAST SODIUM
     Dosage: UNK, UNKNOWN FREQ.
     Route: 065
     Dates: start: 20200901
  7. AZITHROMYCIN [Concomitant]
     Active Substance: AZITHROMYCIN
     Dosage: UNK, UNKNOWN FREQ.
     Route: 065
     Dates: start: 20180105

REACTIONS (1)
  - Respiratory tract infection [Recovered/Resolved]

NARRATIVE: CASE EVENT DATE: 20220515
